FAERS Safety Report 6748520-9 (Version None)
Quarter: 2010Q2

REPORT INFORMATION
  Report Type: 
  Country: None (occurrence: None)
  Receive Date: 20100527
  Receipt Date: 20100527
  Transmission Date: 20101027
  Serious: Yes (Life-Threatening)
  Sender: FDA-Public Use
  Company Number: None

PATIENT

DRUGS (2)
  1. WARFARIN SODIUM [Suspect]
     Dosage: 10 MG AS DIRECTED ORAL
     Route: 048
     Dates: start: 20100324
  2. WARFARIN SODIUM [Suspect]
     Dosage: 10 MG AS DIRECTED ORAL
     Route: 048
     Dates: start: 20100324

REACTIONS (3)
  - DRUG INEFFECTIVE [None]
  - INTERNATIONAL NORMALISED RATIO DECREASED [None]
  - PRODUCT SUBSTITUTION ISSUE [None]
